FAERS Safety Report 5767822-6 (Version None)
Quarter: 2008Q2

REPORT INFORMATION
  Report Type: 
  Country: None (occurrence: None)
  Receive Date: 20080612
  Receipt Date: 20080530
  Transmission Date: 20081010
  Serious: Yes (Hospitalization, Other)
  Sender: FDA-Public Use
  Company Number: PHHY2008FR09557

PATIENT
  Sex: Male

DRUGS (5)
  1. ZOMETA [Suspect]
     Dosage: UNK
     Route: 042
     Dates: start: 20070202
  2. SUTENT [Suspect]
     Dosage: UNK
     Dates: start: 20070202
  3. SUTENT [Suspect]
     Dosage: 37.5 MG, BIW
     Route: 048
     Dates: start: 20071114
  4. EPOETIN BETA [Suspect]
     Dosage: 30 DF 4 WEEKLY
     Route: 058
     Dates: start: 20070202
  5. VELBE [Suspect]
     Dosage: 1 DF 4 WEEKLY
     Route: 042
     Dates: start: 20070725

REACTIONS (11)
  - ABDOMINAL PAIN [None]
  - C-REACTIVE PROTEIN INCREASED [None]
  - CHOLECYSTECTOMY [None]
  - CHOLECYSTITIS ACUTE [None]
  - CHOLELITHIASIS [None]
  - HEPATOMEGALY [None]
  - INFLAMMATION [None]
  - LEUKOCYTOSIS [None]
  - METASTASES TO LIVER [None]
  - SCAN ABDOMEN ABNORMAL [None]
  - VOMITING [None]
